FAERS Safety Report 18024657 (Version 1)
Quarter: 2020Q3

REPORT INFORMATION
  Report Type: Spontaneous
  Country: US (occurrence: US)
  Receive Date: 20200714
  Receipt Date: 20200714
  Transmission Date: 20201103
  Serious: Yes (Hospitalization)
  Sender: FDA-Public Use
  Company Number: None

PATIENT
  Age: 73 Year
  Sex: Male
  Weight: 88.3 kg

DRUGS (3)
  1. IBRUTINIB [Suspect]
     Active Substance: IBRUTINIB
     Indication: WALDENSTROM^S MACROGLOBULINAEMIA
     Route: 048
     Dates: start: 20190823, end: 20191210
  2. NO DRUG NAME [Concomitant]
  3. IXAZOMIB [Suspect]
     Active Substance: IXAZOMIB
     Indication: WALDENSTROM^S MACROGLOBULINAEMIA
     Dosage: FREQUENCY: DAYS: 1,8, 15
     Route: 048
     Dates: start: 20190821, end: 20191030

REACTIONS (11)
  - Mental status changes [None]
  - Pneumonia [None]
  - Dehydration [None]
  - Muscular weakness [None]
  - Confusional state [None]
  - Decreased appetite [None]
  - Delirium [None]
  - Hyponatraemia [None]
  - Asthenia [None]
  - Malaise [None]
  - Fatigue [None]

NARRATIVE: CASE EVENT DATE: 20200102
